FAERS Safety Report 10588927 (Version 2)
Quarter: 2014Q4

REPORT INFORMATION
  Report Type: Report from Study
  Country: HU (occurrence: HU)
  Receive Date: 20141117
  Receipt Date: 20141117
  Transmission Date: 20150529
  Serious: Yes (Life-Threatening)
  Sender: FDA-Public Use
  Company Number: HU-BRISTOL-MYERS SQUIBB COMPANY-21357694

PATIENT
  Age: 64 Year
  Sex: Female

DRUGS (12)
  1. ONDANSETRON [Concomitant]
     Active Substance: ONDANSETRON
     Route: 048
     Dates: start: 20140526
  2. PLACEBO [Suspect]
     Active Substance: UNSPECIFIED INGREDIENT
     Indication: SMALL CELL LUNG CANCER
     Route: 042
     Dates: start: 20140620, end: 20140620
  3. DUROGESIC [Concomitant]
     Active Substance: FENTANYL
     Dates: start: 20140411
  4. FRONTIN [Concomitant]
     Active Substance: ALPRAZOLAM
     Dates: start: 19990715
  5. CISPLATIN. [Suspect]
     Active Substance: CISPLATIN
     Indication: SMALL CELL LUNG CANCER
     Route: 042
     Dates: start: 20140506, end: 20140618
  6. CONCOR [Concomitant]
     Active Substance: BISOPROLOL FUMARATE
     Dates: start: 20140331
  7. APRANAX [Concomitant]
     Active Substance: NAPROXEN
     Dates: start: 20140331
  8. BLINDED: IPILIMUMAB [Suspect]
     Active Substance: IPILIMUMAB
     Indication: SMALL CELL LUNG CANCER
     Route: 042
     Dates: start: 20140620, end: 20140620
  9. TORVALIPIN [Concomitant]
     Dates: start: 20140331
  10. ETOPOSIDE. [Suspect]
     Active Substance: ETOPOSIDE
     Indication: SMALL CELL LUNG CANCER
     Route: 042
     Dates: start: 20140506, end: 20140620
  11. THEOSPIREX [Concomitant]
     Active Substance: THEOPHYLLINE ANHYDROUS
     Dates: start: 20140331
  12. BONEFOS [Concomitant]
     Active Substance: CLODRONATE DISODIUM
     Dates: start: 20140411

REACTIONS (1)
  - Renal failure [Unknown]

NARRATIVE: CASE EVENT DATE: 20140716
